FAERS Safety Report 16070903 (Version 5)
Quarter: 2019Q2

REPORT INFORMATION
  Report Type: Report from Study
  Country: SE (occurrence: SE)
  Receive Date: 20190314
  Receipt Date: 20190618
  Transmission Date: 20190711
  Serious: Yes (Other)
  Sender: FDA-Public Use
  Company Number: SE-ROCHE-2280479

PATIENT
  Age: 41 Year
  Sex: Female

DRUGS (11)
  1. DOCETAXEL. [Suspect]
     Active Substance: DOCETAXEL
     Indication: HER-2 POSITIVE BREAST CANCER
     Dosage: LAST DOSE PRIOR TO SAE WAS RECEIVED ON 24/MAR/2014.
     Route: 065
     Dates: start: 20131204
  2. LETROZOL [Concomitant]
     Active Substance: LETROZOLE
     Indication: BREAST CANCER
     Route: 065
     Dates: start: 20150623
  3. ZOMETA [Concomitant]
     Active Substance: ZOLEDRONIC ACID
     Indication: METASTASES TO BONE
     Route: 065
     Dates: start: 20141001
  4. EMLA [LIDOCAINE;PRILOCAINE] [Concomitant]
     Dosage: PRN
     Route: 065
     Dates: start: 20150817
  5. TRASTUZUMAB. [Suspect]
     Active Substance: TRASTUZUMAB
     Indication: HER-2 POSITIVE BREAST CANCER
     Dosage: RECEIVED 8 MILLIGRAMS PER KILOGRAM (MG/KG) IV ON DAY 1 OR DAY 2 OF CYCLE 1 LOADING DOSE
     Route: 042
     Dates: start: 20131204
  6. TRASTUZUMAB. [Suspect]
     Active Substance: TRASTUZUMAB
     Dosage: FOLLOWED BY 6 MG/KG IV ON DAY 1 OR DAY 2 OF EACH SUBSEQUENT 3-WEEK CYCLE, ADMINISTERED IN LINE WITH
     Route: 042
  7. PERTUZUMAB. [Suspect]
     Active Substance: PERTUZUMAB
     Dosage: 420 MG IV ON DAY 1 OR DAY 2 OF EACH SUBSEQUENT 3-WEEK CYCLE MAINTAINANCE DOSE?DATE OF MOST RECENT D
     Route: 042
  8. PERTUZUMAB. [Suspect]
     Active Substance: PERTUZUMAB
     Indication: HER-2 POSITIVE BREAST CANCER
     Dosage: RECEIVED 840 MILLIGRAMS (MG) IV ON DAY 1 OR DAY 2 OF CYCLE 1, LOADING DOSE
     Route: 042
     Dates: start: 20131204
  9. ZOLADEX [Concomitant]
     Active Substance: GOSERELIN ACETATE
     Indication: BREAST CANCER
     Route: 065
     Dates: start: 20140507
  10. PREDNISOLON [PREDNISOLONE] [Concomitant]
     Active Substance: PREDNISOLONE
     Route: 065
     Dates: start: 20160503
  11. ALVEDON [Concomitant]
     Active Substance: ACETAMINOPHEN
     Dosage: PRN
     Route: 065
     Dates: start: 20140612

REACTIONS (1)
  - Cholangitis sclerosing [Not Recovered/Not Resolved]

NARRATIVE: CASE EVENT DATE: 20190226
